FAERS Safety Report 14615173 (Version 1)
Quarter: 2018Q1

REPORT INFORMATION
  Report Type: Spontaneous
  Country: BR (occurrence: BR)
  Receive Date: 20180308
  Receipt Date: 20180308
  Transmission Date: 20180509
  Serious: Yes (Other)
  Sender: FDA-Public Use
  Company Number: BR-PFIZER INC-2018089102

PATIENT
  Sex: Female

DRUGS (4)
  1. ALDACTONE [Suspect]
     Active Substance: SPIRONOLACTONE
     Indication: RETINAL DETACHMENT
     Dosage: 2 TABLETS A DAY
  2. METICORTEN [Suspect]
     Active Substance: PREDNISONE
     Indication: SUBRETINAL FLUID
  3. ALDACTONE [Suspect]
     Active Substance: SPIRONOLACTONE
     Indication: SUBRETINAL FLUID
     Dosage: ONE TABLET A DAY
  4. METICORTEN [Suspect]
     Active Substance: PREDNISONE
     Indication: RETINAL DETACHMENT
     Dosage: UNK

REACTIONS (4)
  - Tremor [Not Recovered/Not Resolved]
  - Dizziness [Not Recovered/Not Resolved]
  - Arrhythmia [Not Recovered/Not Resolved]
  - Vision blurred [Unknown]
